FAERS Safety Report 13571623 (Version 1)
Quarter: 2017Q2

REPORT INFORMATION
  Report Type: Spontaneous
  Country: GB (occurrence: GB)
  Receive Date: 20170523
  Receipt Date: 20170523
  Transmission Date: 20170830
  Serious: Yes (Hospitalization, Other)
  Sender: FDA-Public Use
  Company Number: GB-ACCORD-051614

PATIENT
  Age: 56 Year
  Sex: Male

DRUGS (12)
  1. BISOPROLOL [Suspect]
     Active Substance: BISOPROLOL
     Indication: PRODUCT USED FOR UNKNOWN INDICATION
  2. FUROSEMIDE. [Suspect]
     Active Substance: FUROSEMIDE
     Indication: OEDEMA
     Dosage: RECENTLY BEEN INCREASED TO 250 MG ONCE DAILY
     Route: 048
     Dates: end: 20170427
  3. SIMVASTATIN. [Concomitant]
     Active Substance: SIMVASTATIN
  4. METOLAZONE. [Concomitant]
     Active Substance: METOLAZONE
  5. ASPIRIN. [Suspect]
     Active Substance: ASPIRIN
     Indication: ANTIPLATELET THERAPY
  6. ZOPICLONE [Concomitant]
     Active Substance: ZOPICLONE
  7. CLOPIDOGREL [Suspect]
     Active Substance: CLOPIDOGREL BISULFATE
     Indication: ANTIPLATELET THERAPY
  8. NOVORAPID [Concomitant]
     Active Substance: INSULIN ASPART
  9. ENOXAPARIN [Suspect]
     Active Substance: ENOXAPARIN
     Indication: ANTIPLATELET THERAPY
  10. AMITRIPTYLINE [Concomitant]
     Active Substance: AMITRIPTYLINE
  11. RAMIPRIL. [Suspect]
     Active Substance: RAMIPRIL
     Indication: PRODUCT USED FOR UNKNOWN INDICATION
  12. LEVEMIR [Concomitant]
     Active Substance: INSULIN DETEMIR

REACTIONS (6)
  - Bradycardia [Unknown]
  - Rectal haemorrhage [Unknown]
  - Hypokalaemia [Recovering/Resolving]
  - Epistaxis [Unknown]
  - Syncope [Unknown]
  - Acute kidney injury [Unknown]

NARRATIVE: CASE EVENT DATE: 20170427
